FAERS Safety Report 12751481 (Version 1)
Quarter: 2016Q3

REPORT INFORMATION
  Report Type: Spontaneous
  Country: US (occurrence: US)
  Receive Date: 20160916
  Receipt Date: 20160916
  Transmission Date: 20161109
  Serious: Yes (Life-Threatening, Hospitalization)
  Sender: FDA-Public Use
  Company Number: None

PATIENT
  Age: 39 Year
  Sex: Male

DRUGS (1)
  1. CLOZAPINE. [Suspect]
     Active Substance: CLOZAPINE
     Indication: PSYCHOTIC DISORDER
     Route: 048
     Dates: start: 20160427, end: 20160916

REACTIONS (4)
  - Salivary hypersecretion [None]
  - Pneumonia [None]
  - Antipsychotic drug level increased [None]
  - Pneumonitis [None]

NARRATIVE: CASE EVENT DATE: 20160512
